FAERS Safety Report 4575468-0 (Version None)
Quarter: 2005Q1

REPORT INFORMATION
  Report Type: 
  Country: None (occurrence: None)
  Receive Date: 20050209
  Receipt Date: 20050202
  Transmission Date: 20050727
  Serious: Yes (Death, Hospitalization)
  Sender: FDA-Public Use
  Company Number: 200510416FR

PATIENT
  Age: 46 Year
  Sex: Male

DRUGS (6)
  1. CISPLATIN [Suspect]
     Indication: LUNG NEOPLASM MALIGNANT
     Route: 042
     Dates: start: 20050106, end: 20050106
  2. LOVENOX [Suspect]
     Route: 058
     Dates: start: 20041221, end: 20050106
  3. KETEK [Suspect]
     Route: 048
     Dates: start: 20041221, end: 20050105
  4. MOPRAL [Suspect]
     Route: 042
     Dates: start: 20050106, end: 20050106
  5. ZOPHREN [Suspect]
     Route: 042
     Dates: start: 20050105, end: 20050106
  6. GEMZAR [Suspect]
     Route: 042
     Dates: start: 20050105, end: 20050105

REACTIONS (3)
  - HEPATIC FAILURE [None]
  - HEPATITIS [None]
  - HEPATITIS CHOLESTATIC [None]
